FAERS Safety Report 5004180-9 (Version None)
Quarter: 2006Q2

REPORT INFORMATION
  Report Type: 
  Country: None (occurrence: None)
  Receive Date: 20060517
  Receipt Date: 20060511
  Transmission Date: 20061013
  Serious: Yes (Other)
  Sender: FDA-Public Use
  Company Number: DE-JNJFOC-20060301729

PATIENT
  Sex: Male
  Weight: 90 kg

DRUGS (3)
  1. RISPERDAL [Suspect]
     Route: 048
  2. ERGENYL [Concomitant]
     Route: 048
  3. PERAZINE [Concomitant]
     Route: 048

REACTIONS (1)
  - EOSINOPHILIA [None]
